FAERS Safety Report 6052117-6 (Version None)
Quarter: 2009Q1

REPORT INFORMATION
  Report Type: 
  Country: None (occurrence: None)
  Receive Date: 20090126
  Receipt Date: 20090119
  Transmission Date: 20090719
  Serious: Yes (Death)
  Sender: FDA-Public Use
  Company Number: US-B.I. PHARMACEUTICALS,INC./RIDGEFIELD-2009-DE-00579GD

PATIENT
  Age: 60 Year
  Sex: Female

DRUGS (3)
  1. CLONIDINE HCL [Suspect]
  2. DILTIAZEM [Suspect]
     Route: 048
  3. CLONAZEPAM [Suspect]

REACTIONS (2)
  - COMPLETED SUICIDE [None]
  - DRUG ABUSE [None]
